FAERS Safety Report 6403562-8 (Version None)
Quarter: 2009Q4

REPORT INFORMATION
  Report Type: 
  Country: None (occurrence: None)
  Receive Date: 20091013
  Receipt Date: 20090928
  Transmission Date: 20100525
  Serious: Yes (Hospitalization)
  Sender: FDA-Public Use
  Company Number: DSA_41789_2009

PATIENT
  Age: 16 Year
  Sex: Male

DRUGS (7)
  1. ENALAPRIL MALEATE [Suspect]
     Indication: RENAL TRANSPLANT
     Dosage: (2.5 MG QD ORAL)
     Route: 048
     Dates: start: 20090226, end: 20090731
  2. SOMATROPIN [Concomitant]
  3. TACROLIMUS [Concomitant]
  4. CLONAZEPAM [Concomitant]
  5. MYCOPHENOLATE SODIUM [Concomitant]
  6. PREDNSONE [Concomitant]
  7. VERAPAMIL HYDROCHLORIDE [Concomitant]

REACTIONS (2)
  - DEHYDRATION [None]
  - RENAL FAILURE ACUTE [None]
